FAERS Safety Report 19003055 (Version 1)
Quarter: 2021Q1

REPORT INFORMATION
  Report Type: Report from Study
  Country: US (occurrence: US)
  Receive Date: 20210312
  Receipt Date: 20210312
  Transmission Date: 20210420
  Serious: Yes (Hospitalization)
  Sender: FDA-Public Use
  Company Number: US-JNJFOC-20210226233

PATIENT
  Age: 84 Year
  Sex: Male
  Weight: 95.9 kg

DRUGS (3)
  1. OPSUMIT [Suspect]
     Active Substance: MACITENTAN
     Indication: PULMONARY ARTERIAL HYPERTENSION
     Route: 048
  2. ADEMPAS [Concomitant]
     Active Substance: RIOCIGUAT
  3. XARELTO [Concomitant]
     Active Substance: RIVAROXABAN

REACTIONS (6)
  - Dyspnoea exertional [Unknown]
  - Loss of consciousness [Unknown]
  - Dizziness [Unknown]
  - Oxygen saturation decreased [Unknown]
  - Fall [Unknown]
  - Peripheral swelling [Unknown]

NARRATIVE: CASE EVENT DATE: 20210209
